FAERS Safety Report 9745481 (Version 1)
Quarter: 2013Q4

REPORT INFORMATION
  Report Type: Spontaneous
  Country: FR (occurrence: FR)
  Receive Date: 20131211
  Receipt Date: 20131211
  Transmission Date: 20140711
  Serious: Yes (Hospitalization)
  Sender: FDA-Public Use
  Company Number: FR-MERCK-1312FRA003712

PATIENT
  Age: 76 Year
  Sex: Female
  Weight: 52 kg

DRUGS (5)
  1. VIRAFERONPEG [Suspect]
     Dosage: UNK
     Dates: start: 201201, end: 201203
  2. RIBAVIRIN [Concomitant]
     Dosage: UNK
     Dates: start: 201201, end: 201212
  3. TELAPREVIR [Concomitant]
     Dosage: UNK
     Dates: start: 201201, end: 201212
  4. LEVOTHYROX [Concomitant]
  5. NISISCO [Concomitant]

REACTIONS (4)
  - Urinary tract infection [Unknown]
  - Weight decreased [Recovered/Resolved]
  - Alopecia [Unknown]
  - Balance disorder [Not Recovered/Not Resolved]
